FAERS Safety Report 5608190-X (Version None)
Quarter: 2008Q1

REPORT INFORMATION
  Report Type: 
  Country: None (occurrence: None)
  Receive Date: 20080130
  Receipt Date: 20080119
  Transmission Date: 20080703
  Serious: Yes (Hospitalization)
  Sender: FDA-Public Use
  Company Number: GB-ROCHE-542326

PATIENT
  Age: 66 Year
  Sex: Male
  Weight: 123.4 kg

DRUGS (10)
  1. ORLISTAT [Suspect]
     Indication: OBESITY
     Route: 048
     Dates: start: 20070814
  2. LISINOPRIL [Concomitant]
     Indication: BLOOD PRESSURE
     Route: 048
  3. WARFARIN SODIUM [Concomitant]
     Indication: ATRIAL FIBRILLATION
     Route: 048
  4. IRBESARTAN [Concomitant]
     Indication: BLOOD PRESSURE
     Dosage: DOSAGE: 300+12.5 MG
     Route: 048
  5. SIMVASTATIN [Concomitant]
     Route: 048
  6. DOXAZOSIN [Concomitant]
     Route: 048
  7. MOXONIDINE [Concomitant]
     Route: 048
  8. CITALOPRAM HYDROBROMIDE [Concomitant]
     Route: 048
  9. SOTALOL HYDROCHLORIDE [Concomitant]
     Indication: ATRIAL FIBRILLATION
     Dosage: 2 X 40 MG TABLETS, EACH MORNING AND EVENING
     Route: 048
  10. SOTALOL HYDROCHLORIDE [Concomitant]
     Dosage: DOSAGE DOUBLED
     Route: 048
     Dates: start: 20080115

REACTIONS (1)
  - PALPITATIONS [None]
